FAERS Safety Report 13706908 (Version 1)
Quarter: 2017Q2

REPORT INFORMATION
  Report Type: Report from Study
  Country: None (occurrence: US)
  Receive Date: 20170630
  Receipt Date: 20170630
  Transmission Date: 20170830
  Serious: Yes (Other)
  Sender: FDA-Public Use
  Company Number: US-IPSEN BIOPHARMACEUTICALS, INC.-2015-5266

PATIENT
  Sex: Female
  Weight: 95.7 kg

DRUGS (3)
  1. SIMILAR BUT UNKNOWN DRUG [Suspect]
     Active Substance: UNSPECIFIED INGREDIENT
     Indication: PRODUCT USED FOR UNKNOWN INDICATION
     Dosage: NOT REPORTED
     Route: 065
     Dates: start: 201501, end: 201504
  2. SOMATULINE DEPOT [Suspect]
     Active Substance: LANREOTIDE ACETATE
     Dosage: 120MG
     Route: 058
     Dates: start: 20120914, end: 20150106
  3. SOMATULINE DEPOT [Suspect]
     Active Substance: LANREOTIDE ACETATE
     Indication: ACROMEGALY
     Dosage: 120MG
     Route: 058
     Dates: start: 20150505

REACTIONS (5)
  - Fatigue [Unknown]
  - Malaise [Unknown]
  - Type 2 diabetes mellitus [Not Recovered/Not Resolved]
  - Adrenal insufficiency [Not Recovered/Not Resolved]
  - Insulin-like growth factor increased [Not Recovered/Not Resolved]
